FAERS Safety Report 24682103 (Version 1)
Quarter: 2024Q4

REPORT INFORMATION
  Report Type: Spontaneous
  Country: GB (occurrence: GB)
  Receive Date: 20241130
  Receipt Date: 20241130
  Transmission Date: 20250115
  Serious: Yes (Hospitalization, Other)
  Sender: ALEXION PHARMACEUTICALS
  Company Number: None

PATIENT
  Age: 32 Year

DRUGS (19)
  1. BENRALIZUMAB [Suspect]
     Active Substance: BENRALIZUMAB
     Dosage: 30 MG / 1 ML SOLUTION FOR INJECTION PRE-FILLED DISPOSABLE DEVICESAS DIRECTED
     Route: 065
  2. BENRALIZUMAB [Suspect]
     Active Substance: BENRALIZUMAB
     Dosage: 30 MG / 1 ML SOLUTION FOR INJECTION PRE-FILLED DISPOSABLE DEVICESAS DIRECTED
  3. BENRALIZUMAB [Suspect]
     Active Substance: BENRALIZUMAB
     Dosage: 30 MG / 1 ML SOLUTION FOR INJECTION PRE-FILLED DISPOSABLE DEVICESAS DIRECTED
     Route: 065
  4. BENRALIZUMAB [Suspect]
     Active Substance: BENRALIZUMAB
     Dosage: 30 MG / 1 ML SOLUTION FOR INJECTION PRE-FILLED DISPOSABLE DEVICESAS DIRECTED
  5. CODEINE [Suspect]
     Active Substance: CODEINE
     Dosage: ONE OR TWO QDS PRNEXP: 11/2024
  6. CODEINE [Suspect]
     Active Substance: CODEINE
     Dosage: ONE OR TWO QDS PRNEXP: 11/2024
  7. CODEINE [Suspect]
     Active Substance: CODEINE
     Dosage: ONE OR TWO QDS PRNEXP: 11/2024
  8. CODEINE [Suspect]
     Active Substance: CODEINE
     Dosage: ONE OR TWO QDS PRNEXP: 11/2024
  9. SERTRALINE [Concomitant]
     Active Substance: SERTRALINE HYDROCHLORIDE
  10. LEVOTHYROXINE [Concomitant]
     Active Substance: LEVOTHYROXINE
     Dosage: MORNING
  11. LANSOPRAZOLE [Concomitant]
     Active Substance: LANSOPRAZOLE
     Dosage: MORNING
  12. HYDROCORTISONE [Concomitant]
     Active Substance: HYDROCORTISONE
  13. FOLIC ACID [Concomitant]
     Active Substance: FOLIC ACID
  14. ZOPICLONE [Concomitant]
     Active Substance: ZOPICLONE
     Dosage: ON PRN
  15. SOLIFENACIN [Concomitant]
     Active Substance: SOLIFENACIN
  16. ONDANSETRON [Concomitant]
     Active Substance: ONDANSETRON
     Dosage: EXP: 11/2024
  17. BECLOMETHASONE\FORMOTEROL [Concomitant]
     Active Substance: BECLOMETHASONE\FORMOTEROL
     Dosage: 200 / 6 MICROGRAMS / DOSE INHALERPUFFS
  18. BECLOMETHASONE\FORMOTEROL [Concomitant]
     Active Substance: BECLOMETHASONE\FORMOTEROL
     Dosage: 200 / 6 MICROGRAMS / DOSE INHALERPUFFS
  19. ACETAMINOPHEN [Concomitant]
     Active Substance: ACETAMINOPHEN
     Dosage: TWO QDS PRN?

REACTIONS (1)
  - Asthma [Recovered/Resolved]
